APPROVED DRUG PRODUCT: CROMOLYN SODIUM
Active Ingredient: CROMOLYN SODIUM
Strength: 100MG/5ML
Dosage Form/Route: CONCENTRATE;ORAL
Application: A202745 | Product #001 | TE Code: AA
Applicant: MICRO LABS LTD INDIA
Approved: Apr 4, 2013 | RLD: No | RS: No | Type: RX